FAERS Safety Report 7739842-3 (Version None)
Quarter: 2011Q3

REPORT INFORMATION
  Report Type: 
  Country: None (occurrence: None)
  Receive Date: 20110906
  Receipt Date: 20110820
  Transmission Date: 20111222
  Serious: Yes (Other)
  Sender: FDA-Public Use
  Company Number: 09-AUR-10405

PATIENT
  Age: 57 Year
  Sex: Male
  Weight: 86.2 kg

DRUGS (1)
  1. SIMVASTATIN [Suspect]
     Indication: TYPE V HYPERLIPIDAEMIA
     Dosage: (40 MG,),ORAL
     Route: 048

REACTIONS (4)
  - MUSCLE DISORDER [None]
  - FATIGUE [None]
  - MUSCULAR WEAKNESS [None]
  - DYSPNOEA EXERTIONAL [None]
